FAERS Safety Report 8606136-3 (Version None)
Quarter: 2012Q3

REPORT INFORMATION
  Report Type: 
  Country: None (occurrence: None)
  Receive Date: 20120820
  Receipt Date: 19910729
  Transmission Date: 20120928
  Serious: Yes (Other)
  Sender: FDA-Public Use
  Company Number: US-ROCHE-1101459

PATIENT
  Age: 55 Year
  Sex: Female

DRUGS (8)
  1. ACTIVASE [Suspect]
     Indication: ACUTE MYOCARDIAL INFARCTION
     Route: 042
  2. HEPARIN [Concomitant]
     Route: 041
  3. NITROGLYCERIN [Concomitant]
     Route: 060
  4. STREPTOKINASE [Concomitant]
     Dosage: 1.5 MILLION UNITS
  5. NITROGLYCERIN [Concomitant]
     Route: 042
  6. ASPIRIN [Concomitant]
     Route: 048
  7. LIDOCAINE [Concomitant]
     Route: 042
  8. NITROGLYCERIN [Concomitant]
     Route: 062

REACTIONS (2)
  - DYSPNOEA [None]
  - DIZZINESS [None]
